FAERS Safety Report 13877985 (Version 1)
Quarter: 2017Q3

REPORT INFORMATION
  Report Type: Spontaneous
  Country: US (occurrence: US)
  Receive Date: 20170817
  Receipt Date: 20170817
  Transmission Date: 20171127
  Serious: No
  Sender: FDA-Public Use
  Company Number: US-ASTRAZENECA-2017SE83322

PATIENT
  Age: 26514 Day
  Sex: Female
  Weight: 65.8 kg

DRUGS (4)
  1. ZYRTEC [Concomitant]
     Active Substance: CETIRIZINE HYDROCHLORIDE
     Indication: MULTIPLE ALLERGIES
     Dosage: EVERY MORNING
  2. MUSINEX [Concomitant]
     Dosage: AT NIGHT
  3. TUDORZA PRESSAIR [Suspect]
     Active Substance: ACLIDINIUM BROMIDE
     Route: 055
  4. TUDORZA PRESSAIR [Suspect]
     Active Substance: ACLIDINIUM BROMIDE
     Dosage: 400UG ONE INHALATION TWO TIMES A DAY
     Route: 055
     Dates: start: 2012, end: 20150711

REACTIONS (5)
  - Rash [Unknown]
  - Drug dose omission [Unknown]
  - Multiple allergies [Unknown]
  - Device malfunction [Unknown]
  - Intentional product misuse [Unknown]

NARRATIVE: CASE EVENT DATE: 20150711
